FAERS Safety Report 4933611-5 (Version None)
Quarter: 2006Q1

REPORT INFORMATION
  Report Type: 
  Country: None (occurrence: None)
  Receive Date: 20060111
  Receipt Date: 20050707
  Transmission Date: 20060701
  Serious: Yes (Hospitalization)
  Sender: FDA-Public Use
  Company Number: A001-002-006558

PATIENT
  Age: 92 Year
  Sex: Female

DRUGS (1)
  1. ARICEPT [Suspect]
     Indication: DEMENTIA ALZHEIMER'S TYPE
     Dosage: 10 MG,1 IN 1 D; ORAL
     Route: 048
     Dates: end: 20040101

REACTIONS (2)
  - FALL [None]
  - PELVIC FRACTURE [None]
